FAERS Safety Report 5228777-6 (Version None)
Quarter: 2007Q1

REPORT INFORMATION
  Report Type: 
  Country: None (occurrence: None)
  Receive Date: 20070131
  Receipt Date: 20070122
  Transmission Date: 20070707
  Serious: Yes (Hospitalization)
  Sender: FDA-Public Use
  Company Number: 2007-153574-NL

PATIENT
  Age: 67 Year
  Sex: Male

DRUGS (4)
  1. DANAPAROID SODIUM [Suspect]
     Indication: THROMBOCYTOPENIA
     Dosage: INTRAVENOUS (NOS)
     Route: 042
     Dates: start: 20061024, end: 20061027
  2. OFLOXACIN [Suspect]
     Dosage: ORAL
     Route: 048
     Dates: start: 20061020, end: 20061030
  3. OMEPRAZOLE [Suspect]
     Dosage: ORAL
     Route: 048
     Dates: start: 20061018, end: 20061022
  4. ENOXAPARIN SODIUM [Suspect]
     Dosage: SUBCUTANEOUS
     Route: 058
     Dates: start: 20061018, end: 20061023

REACTIONS (4)
  - ANAEMIA [None]
  - CONDITION AGGRAVATED [None]
  - HAEMATURIA [None]
  - THROMBOCYTOPENIA [None]
